FAERS Safety Report 9193807 (Version 2)
Quarter: 2013Q2

REPORT INFORMATION
  Report Type: Spontaneous
  Country: RO (occurrence: RO)
  Receive Date: 20130327
  Receipt Date: 20130404
  Transmission Date: 20140414
  Serious: Yes (Hospitalization)
  Sender: FDA-Public Use
  Company Number: RO-ASTRAZENECA-2013SE19126

PATIENT
  Age: 45 Year
  Sex: Male

DRUGS (17)
  1. SEROQUEL [Suspect]
     Indication: DEPRESSION
     Route: 048
     Dates: start: 201107
  2. SEROQUEL [Suspect]
     Indication: DEPRESSION
     Route: 048
  3. SEROQUEL [Suspect]
     Indication: DEPRESSION
     Route: 048
  4. RIVOTRIL [Suspect]
     Dates: start: 201107
  5. RIVOTRIL [Suspect]
  6. DIAZEPAM [Suspect]
  7. MIRTAZAPINE [Suspect]
  8. SERTRALINE [Suspect]
     Dates: start: 201107
  9. SERTRALINE [Suspect]
  10. SERTRALINE [Suspect]
  11. ORFIRIL [Suspect]
  12. ORFIRIL [Suspect]
  13. ZYPREXA [Suspect]
  14. XANAX [Concomitant]
     Dates: start: 1997
  15. XANAX [Concomitant]
     Dates: start: 2010
  16. XANAX [Concomitant]
     Dosage: DOSE REDUCED
  17. ANTIBIOTICS [Concomitant]
     Indication: PYREXIA

REACTIONS (2)
  - Major depression [Recovering/Resolving]
  - Intestinal obstruction [Recovered/Resolved]
